FAERS Safety Report 9951114 (Version 1)
Quarter: 2014Q1

REPORT INFORMATION
  Report Type: Report from Study
  Country: US (occurrence: US)
  Receive Date: 20140304
  Receipt Date: 20140304
  Transmission Date: 20141002
  Serious: No
  Sender: FDA-Public Use
  Company Number: US-ABBVIE-13P-163-1070091-00

PATIENT
  Age: 55 Year
  Sex: Male
  Weight: 94.89 kg

DRUGS (2)
  1. HUMIRA [Suspect]
     Indication: PSORIASIS
     Dates: start: 20130211, end: 20130211
  2. HUMIRA [Suspect]
     Dates: start: 20130218, end: 201303

REACTIONS (3)
  - Bronchitis [Not Recovered/Not Resolved]
  - Influenza [Not Recovered/Not Resolved]
  - Hypertension [Not Recovered/Not Resolved]
